FAERS Safety Report 7683135-X (Version None)
Quarter: 2011Q3

REPORT INFORMATION
  Report Type: 
  Country: None (occurrence: None)
  Receive Date: 20110815
  Receipt Date: 20110804
  Transmission Date: 20111222
  Serious: Yes (Other)
  Sender: FDA-Public Use
  Company Number: DE-JNJFOC-20110806081

PATIENT
  Sex: Male

DRUGS (2)
  1. TRAMADOL HCL [Suspect]
     Indication: POST-TRAUMATIC PAIN
     Route: 065
  2. ANALGESICS [Concomitant]
     Indication: POST-TRAUMATIC PAIN
     Route: 065

REACTIONS (2)
  - ARTERY DISSECTION [None]
  - CEREBROVASCULAR ACCIDENT [None]
